FAERS Safety Report 5230117-3 (Version None)
Quarter: 2007Q1

REPORT INFORMATION
  Report Type: 
  Country: None (occurrence: None)
  Receive Date: 20070206
  Receipt Date: 20060817
  Transmission Date: 20070707
  Serious: No
  Sender: FDA-Public Use
  Company Number: US-GLAXOSMITHKLINE-A0612685A

PATIENT
  Age: 35 Year
  Sex: Male
  Weight: 45.9 kg

DRUGS (1)
  1. PAXIL CR [Suspect]
     Dosage: 62.5MG PER DAY
     Route: 048

REACTIONS (1)
  - DRUG INEFFECTIVE [None]
